FAERS Safety Report 19360329 (Version 1)
Quarter: 2021Q2

REPORT INFORMATION
  Report Type: Spontaneous
  Country: US (occurrence: US)
  Receive Date: 20210601
  Receipt Date: 20210601
  Transmission Date: 20210717
  Serious: No
  Sender: FDA-Public Use
  Company Number: US-PFIZER INC-2021235714

PATIENT
  Age: 64 Year
  Sex: Female

DRUGS (1)
  1. AROMASIN [Suspect]
     Active Substance: EXEMESTANE
     Dosage: 25 MG

REACTIONS (8)
  - Ocular hyperaemia [Unknown]
  - Erythema of eyelid [Unknown]
  - Eye pruritus [Unknown]
  - Lacrimation increased [Unknown]
  - Arthralgia [Unknown]
  - Eye irritation [Unknown]
  - Vision blurred [Unknown]
  - Ocular discomfort [Unknown]
